FAERS Safety Report 16346847 (Version 1)
Quarter: 2019Q2

REPORT INFORMATION
  Report Type: Report from Study
  Country: US (occurrence: US)
  Receive Date: 20190523
  Receipt Date: 20190523
  Transmission Date: 20190711
  Serious: Yes (Death, Hospitalization, Other)
  Sender: FDA-Public Use
  Company Number: US-GLAXOSMITHKLINE-US2019AMR090833

PATIENT
  Age: 75 Year
  Sex: Male

DRUGS (2)
  1. EXCEDRIN [Suspect]
     Active Substance: ACETAMINOPHEN\ASPIRIN\CAFFEINE
     Indication: HEADACHE
     Dosage: UNK
     Route: 048
     Dates: start: 2015
  2. HUMIRA [Suspect]
     Active Substance: ADALIMUMAB
     Indication: CROHN^S DISEASE
     Dosage: UNK
     Route: 058
     Dates: start: 2016

REACTIONS (10)
  - Cerebral haemorrhage [Recovered/Resolved]
  - Contusion [Not Recovered/Not Resolved]
  - Lung cancer metastatic [Fatal]
  - Brain operation [Unknown]
  - Gait disturbance [Not Recovered/Not Resolved]
  - Intracranial mass [Unknown]
  - Coma [Not Recovered/Not Resolved]
  - Fall [Not Recovered/Not Resolved]
  - Blood viscosity decreased [Not Recovered/Not Resolved]
  - Influenza [Recovered/Resolved]

NARRATIVE: CASE EVENT DATE: 2017
